FAERS Safety Report 7508548-8 (Version None)
Quarter: 2011Q2

REPORT INFORMATION
  Report Type: 
  Country: None (occurrence: None)
  Receive Date: 20110421
  Receipt Date: 20091214
  Transmission Date: 20111010
  Serious: Yes (Other)
  Sender: FDA-Public Use
  Company Number: ALL1-2009-02978

PATIENT
  Age: 12 Year
  Sex: Male
  Weight: 43.5 kg

DRUGS (1)
  1. VYVANSE [Suspect]
     Indication: ATTENTION DEFICIT/HYPERACTIVITY DISORDER
     Dosage: 20 MG, 1X/DAY;QD, ORAL
     Route: 048
     Dates: start: 20090926

REACTIONS (6)
  - SYNCOPE [None]
  - DRUG INEFFECTIVE [None]
  - LACERATION [None]
  - FALL [None]
  - HAEMORRHAGE [None]
  - HEAD INJURY [None]
